FAERS Safety Report 6005332-1 (Version None)
Quarter: 2008Q4

REPORT INFORMATION
  Report Type: 
  Country: None (occurrence: None)
  Receive Date: 20081215
  Receipt Date: 20081125
  Transmission Date: 20090506
  Serious: Yes (Other)
  Sender: FDA-Public Use
  Company Number: 2280705-2008-00011

PATIENT
  Sex: Female

DRUGS (2)
  1. DERMAREST PSORIASIS MEDICATED SHAMPOO PLUS COND. [Suspect]
     Indication: PSORIASIS
     Dosage: 060; 2X A WEEK
     Dates: start: 20081124
  2. DERMAREST PSORIASIS MEDICATED SHAMPOO PLUS COND. [Suspect]
     Indication: SEBORRHOEA
     Dosage: 060; 2X A WEEK
     Dates: start: 20081124

REACTIONS (2)
  - CONJUNCTIVITIS [None]
  - VAGINAL INFECTION [None]
